FAERS Safety Report 7437985-5 (Version None)
Quarter: 2011Q2

REPORT INFORMATION
  Report Type: 
  Country: None (occurrence: None)
  Receive Date: 20110421
  Receipt Date: 20110421
  Transmission Date: 20111010
  Serious: No
  Sender: FDA-Public Use
  Company Number: None

PATIENT
  Age: 38 Year
  Sex: Male
  Weight: 90.7194 kg

DRUGS (1)
  1. AFRIN [Suspect]
     Indication: NASOPHARYNGITIS
     Dosage: 2 OR 3 SPRAYS PER NOSTRIL 10-12 HOURS NASAL
     Route: 045
     Dates: start: 20101115, end: 20110201

REACTIONS (7)
  - INJURY [None]
  - INCORRECT DOSE ADMINISTERED [None]
  - FEAR [None]
  - PRODUCT LABEL ISSUE [None]
  - AGEUSIA [None]
  - ANOSMIA [None]
  - NASOPHARYNGITIS [None]
